FAERS Safety Report 5956764-9 (Version None)
Quarter: 2008Q4

REPORT INFORMATION
  Report Type: 
  Country: None (occurrence: None)
  Receive Date: 20081118
  Receipt Date: 20081106
  Transmission Date: 20090506
  Serious: Yes (Other)
  Sender: FDA-Public Use
  Company Number: GB-ROCHE-595724

PATIENT
  Sex: Female
  Weight: 101.6 kg

DRUGS (2)
  1. ORLISTAT [Suspect]
     Indication: OBESITY
     Route: 048
     Dates: start: 20080414
  2. PROPRANOLOL [Concomitant]
     Indication: ANXIETY
     Route: 048

REACTIONS (4)
  - APATHY [None]
  - BIPOLAR DISORDER [None]
  - DIABETES MELLITUS [None]
  - FATIGUE [None]
